FAERS Safety Report 20671717 (Version 1)
Quarter: 2022Q2

REPORT INFORMATION
  Report Type: Other
  Country: NO (occurrence: NO)
  Receive Date: 20220405
  Receipt Date: 20220405
  Transmission Date: 20220721
  Serious: Yes (Other)
  Sender: FDA-Public Use
  Company Number: NO-DENTSPLY-2022SCDP000068

PATIENT
  Age: 67 Year
  Sex: Female

DRUGS (7)
  1. EPINEPHRINE BITARTRATE\LIDOCAINE HYDROCHLORIDE [Suspect]
     Active Substance: EPINEPHRINE BITARTRATE\LIDOCAINE HYDROCHLORIDE
     Indication: Local anaesthesia
     Dosage: 4 MILLILITER (5 MCG/ML ADRENALINE, 10 MG/ML LIDOCAINE)
     Dates: start: 20220217, end: 20220217
  2. BUPIVACAINE\EPINEPHRINE [Suspect]
     Active Substance: BUPIVACAINE\EPINEPHRINE
     Indication: Induction of anaesthesia
     Dosage: 10 MILLILITER TOTAL (5 MCG/ML ADRENALINE, 2.5 MG/ML BUPIVACAINE)
     Route: 008
     Dates: start: 20220217, end: 20220217
  3. SUFENTA [Suspect]
     Active Substance: SUFENTANIL CITRATE
     Indication: Spinal anaesthesia
     Dosage: 5 MICROGRAM TOTAL
     Route: 042
     Dates: start: 20220217, end: 20220217
  4. DEXAMETHASONE SODIUM PHOSPHATE [Suspect]
     Active Substance: DEXAMETHASONE SODIUM PHOSPHATE
     Indication: Induction of anaesthesia
     Dosage: 4 MILLIGRAM TOTAL
     Route: 042
     Dates: start: 20220217, end: 20220217
  5. CEFAZOLIN SODIUM [Suspect]
     Active Substance: CEFAZOLIN SODIUM
     Indication: Antibiotic prophylaxis
     Dosage: 2 GRAM TOTAL
     Route: 042
     Dates: start: 20220217, end: 20220217
  6. MARCAINE [Suspect]
     Active Substance: BUPIVACAINE HYDROCHLORIDE
     Indication: Spinal anaesthesia
     Dosage: 8 MILLIGRAM TOTAL
     Route: 008
     Dates: start: 20220217, end: 20220217
  7. CHLORHEXIDINE [Concomitant]
     Active Substance: CHLORHEXIDINE
     Indication: Product used for unknown indication
     Dosage: UNK
     Dates: start: 20220217, end: 20220217

REACTIONS (5)
  - Heart rate increased [Recovered/Resolved]
  - Pruritus [Recovered/Resolved]
  - Pruritus [Recovered/Resolved]
  - Hypotension [Recovered/Resolved]
  - Anaphylactic reaction [Recovered/Resolved]

NARRATIVE: CASE EVENT DATE: 20220217
